FAERS Safety Report 10055043 (Version 1)
Quarter: 2014Q2

REPORT INFORMATION
  Report Type: Spontaneous
  Country: US (occurrence: US)
  Receive Date: 20140402
  Receipt Date: 20140402
  Transmission Date: 20141212
  Serious: No
  Sender: FDA-Public Use
  Company Number: US-SA-2014SA034017

PATIENT
  Age: 59 Year
  Sex: Female

DRUGS (8)
  1. AUBAGIO [Suspect]
     Indication: MULTIPLE SCLEROSIS
     Route: 065
     Dates: start: 20131118
  2. SUMATRIPTAN [Concomitant]
     Indication: MIGRAINE
     Route: 048
     Dates: start: 20090101
  3. FOLIC ACID [Concomitant]
     Indication: NUTRITIONAL SUPPLEMENTATION
     Route: 048
     Dates: start: 20140201
  4. VITAMIN B COMPLEX [Concomitant]
     Indication: NUTRITIONAL SUPPLEMENTATION
     Route: 048
     Dates: start: 20140201
  5. GABAPENTIN [Concomitant]
     Indication: NEURALGIA
     Route: 048
     Dates: start: 20090101
  6. DETROL [Concomitant]
     Indication: HYPERTONIC BLADDER
     Route: 048
     Dates: start: 20090101
  7. TAMSULOSIN HYDROCHLORIDE [Concomitant]
     Indication: URINARY RETENTION
     Route: 048
     Dates: start: 20130412
  8. METHENAMINE HIPPURATE [Concomitant]
     Indication: URINARY TRACT DISORDER
     Route: 048
     Dates: start: 20130412

REACTIONS (1)
  - Alopecia [Unknown]
